FAERS Safety Report 20383898 (Version 1)
Quarter: 2022Q1

REPORT INFORMATION
  Report Type: Spontaneous
  Country: CA (occurrence: CA)
  Receive Date: 20220127
  Receipt Date: 20220127
  Transmission Date: 20220423
  Serious: Yes (Death)
  Sender: FDA-Public Use
  Company Number: None

PATIENT
  Age: 76 Year
  Sex: Female

DRUGS (31)
  1. CAPECITABINE [Suspect]
     Active Substance: CAPECITABINE
     Indication: Product used for unknown indication
  2. ACETAMINOPHEN [Concomitant]
     Active Substance: ACETAMINOPHEN
  3. AMIODARONE [Concomitant]
     Active Substance: AMIODARONE
  4. ANTACID [Concomitant]
     Active Substance: ALUMINUM HYDROXIDE\CALCIUM CARBONATE\DIMETHICONE\MAGNESIUM HYDROXIDE
  5. CANDESARTAN [Concomitant]
     Active Substance: CANDESARTAN
  6. DALTEPARIN [Concomitant]
     Active Substance: DALTEPARIN
  7. DIMENHYDRINATE [Concomitant]
     Active Substance: DIMENHYDRINATE
  8. HALOPERIDOL [Concomitant]
     Active Substance: HALOPERIDOL
  9. HEPARIN CALCIUM [Concomitant]
     Active Substance: HEPARIN CALCIUM
  10. HYDROCORTISONE [Concomitant]
     Active Substance: HYDROCORTISONE
  11. HYDROMORPHONE [Concomitant]
     Active Substance: HYDROMORPHONE
  12. POTASSIUM CHLORIDE [Concomitant]
     Active Substance: POTASSIUM CHLORIDE
  13. LOPERAMIDE [Concomitant]
     Active Substance: LOPERAMIDE
  14. MAGNESIUM SULFATE [Concomitant]
     Active Substance: MAGNESIUM SULFATE
  15. MEROPENEM [Concomitant]
     Active Substance: MEROPENEM
     Dosage: POWDER FOR SOLUTION INTRAVENOUS
  16. METOCLOPRAMIDE [Concomitant]
     Active Substance: METOCLOPRAMIDE
  17. NOREPINEPHRINE [Concomitant]
     Active Substance: NOREPINEPHRINE
  18. OCTREOTIDE [Concomitant]
     Active Substance: OCTREOTIDE
  19. OLANZAPINE [Concomitant]
     Active Substance: OLANZAPINE
  20. ONDANSETRON [Concomitant]
     Active Substance: ONDANSETRON
  21. PANTOPRAZOLE [Concomitant]
     Active Substance: PANTOPRAZOLE
  22. PIPERACILLIN AND TAZOBACTAM [Concomitant]
     Active Substance: PIPERACILLIN SODIUM\TAZOBACTAM SODIUM
  23. POTASSIUM CHLORIDE [Concomitant]
     Active Substance: POTASSIUM CHLORIDE
  24. PROCHLORPERAZINE [Concomitant]
     Active Substance: PROCHLORPERAZINE
  25. PROPRANOLOL [Concomitant]
     Active Substance: PROPRANOLOL HYDROCHLORIDE
  26. RANITIDINE [Concomitant]
     Active Substance: RANITIDINE
  27. LACRI-LUBE [Concomitant]
     Dosage: OINTMENT OPHTHALMIC
  28. ROSUVASTATIN [Concomitant]
     Active Substance: ROSUVASTATIN
     Route: 058
  29. CARBOXYMETHYLCELLULOSE SODIUM\DEVICE\SORBINICATE [Concomitant]
     Active Substance: CARBOXYMETHYLCELLULOSE SODIUM\DEVICE\SORBINICATE
  30. TPN [Concomitant]
     Active Substance: AMINO ACIDS\DEXTROSE\ELECTROLYTES NOS\SOYBEAN OIL
  31. VANCOMYCIN [Concomitant]
     Active Substance: VANCOMYCIN

REACTIONS (7)
  - Atrial fibrillation [Fatal]
  - Diarrhoea [Fatal]
  - Enteritis [Fatal]
  - Escherichia test positive [Fatal]
  - Hypotension [Fatal]
  - Nausea [Fatal]
  - Pyrexia [Fatal]
